FAERS Safety Report 9152192 (Version 1)
Quarter: 2013Q1

REPORT INFORMATION
  Report Type: Spontaneous
  Country: US (occurrence: US)
  Receive Date: 20130308
  Receipt Date: 20130308
  Transmission Date: 20140127
  Serious: Yes (Hospitalization)
  Sender: FDA-Public Use
  Company Number: US-ASTRAZENECA-2013SE13931

PATIENT
  Sex: Female
  Weight: 8.7 kg

DRUGS (8)
  1. SYNAGIS [Suspect]
     Indication: SHORT-BOWEL SYNDROME
     Route: 030
     Dates: start: 20121217
  2. SYNAGIS [Suspect]
     Indication: SHORT-BOWEL SYNDROME
     Dosage: RECEIVED A 123 MG DOSE OF SYNAGIS
     Route: 030
     Dates: start: 20121217
  3. SYNAGIS [Suspect]
     Indication: SHORT-BOWEL SYNDROME
     Route: 030
     Dates: start: 20130128
  4. SYNAGIS [Suspect]
     Indication: SHORT-BOWEL SYNDROME
     Dosage: RECEIVED A 128 MG DOSE OF SYNAGIS
     Route: 030
     Dates: start: 20130128
  5. TPN [Concomitant]
  6. PROTONIX [Concomitant]
     Dosage: DAILY
     Route: 042
  7. FERROUS GLUCONATE AND NYSTATIN [Concomitant]
     Route: 061
  8. LACTATED RINGERS [Concomitant]
     Indication: FLUID REPLACEMENT
     Dosage: DAILY

REACTIONS (1)
  - Electrolyte imbalance [Unknown]
